FAERS Safety Report 16353403 (Version 2)
Quarter: 2020Q1

REPORT INFORMATION
  Report Type: Spontaneous
  Country: FR (occurrence: FR)
  Receive Date: 20190524
  Receipt Date: 20200207
  Transmission Date: 20200409
  Serious: Yes (Life-Threatening, Hospitalization, Other)
  Sender: FDA-Public Use
  Company Number: FR-MYLANLABS-2019M1048924

PATIENT
  Age: 21 Year
  Sex: Female

DRUGS (3)
  1. NOREPINEPHRINE. [Suspect]
     Active Substance: NOREPINEPHRINE
     Indication: CARDIOGENIC SHOCK
     Dosage: 58 MICROGRAM/KILOGRAM
     Route: 065
  2. ROCURONIUM [Suspect]
     Active Substance: ROCURONIUM BROMIDE
     Indication: PRODUCT USED FOR UNKNOWN INDICATION
     Route: 065
  3. DOBUTAMINE [Suspect]
     Active Substance: DOBUTAMINE HYDROCHLORIDE
     Indication: CARDIOGENIC SHOCK
     Dosage: 10 MICROGRAM/KILOGRAM
     Route: 065

REACTIONS (11)
  - Cardiac arrest [Recovering/Resolving]
  - Pulmonary oedema [Recovering/Resolving]
  - Ventricular tachycardia [Recovering/Resolving]
  - Brain hypoxia [Recovering/Resolving]
  - Drug ineffective [Recovering/Resolving]
  - Left ventricular failure [Recovered/Resolved]
  - Hypersensitivity myocarditis [Recovering/Resolving]
  - Shock [Recovering/Resolving]
  - Cardiogenic shock [Recovering/Resolving]
  - Congestive cardiomyopathy [Recovering/Resolving]
  - Pulmonary congestion [Recovering/Resolving]
